FAERS Safety Report 9643807 (Version 2)
Quarter: 2014Q1

REPORT INFORMATION
  Report Type: Spontaneous
  Country: US (occurrence: US)
  Receive Date: 20131024
  Receipt Date: 20140307
  Transmission Date: 20141002
  Serious: Yes (Hospitalization, Other)
  Sender: FDA-Public Use
  Company Number: US-ABBVIE-13P-163-1158692-00

PATIENT
  Sex: Male

DRUGS (6)
  1. HUMIRA [Suspect]
     Indication: COLITIS ULCERATIVE
     Route: 058
     Dates: start: 20130508, end: 20130508
  2. HUMIRA [Suspect]
     Route: 058
     Dates: start: 20130522, end: 20130522
  3. HUMIRA [Suspect]
     Route: 058
     Dates: start: 20130605
  4. UNKNOWN CEPHALOSPORIN [Suspect]
     Indication: PRODUCT USED FOR UNKNOWN INDICATION
     Dates: start: 2013
  5. PREDNISONE [Concomitant]
     Indication: PRODUCT USED FOR UNKNOWN INDICATION
  6. ADDERALL [Concomitant]
     Indication: PRODUCT USED FOR UNKNOWN INDICATION

REACTIONS (7)
  - Ejection fraction decreased [Unknown]
  - Mental disorder [Unknown]
  - Cellulitis [Unknown]
  - Cardiac failure congestive [Unknown]
  - Viral myocarditis [Unknown]
  - Endocarditis [Unknown]
  - Staphylococcal infection [Recovering/Resolving]
